FAERS Safety Report 7945639-1 (Version None)
Quarter: 2011Q4

REPORT INFORMATION
  Report Type: 
  Country: None (occurrence: None)
  Receive Date: 20111121
  Receipt Date: 20111109
  Transmission Date: 20120403
  Serious: Yes (Other)
  Sender: FDA-Public Use
  Company Number: 7095253

PATIENT
  Age: 54 Year
  Sex: Female

DRUGS (4)
  1. TILIDIN (VALORON N/00628301/) [Concomitant]
  2. LEVOTHYROXINE SODIUM [Suspect]
     Indication: THYROIDECTOMY
     Dosage: 75 MCG ORAL
     Route: 048
  3. PRAMIPEXOL (PRAMIPEXOLE) [Concomitant]
  4. AMITRIPTYLIN (AMITRIPTYLINE) [Concomitant]

REACTIONS (4)
  - THYROID DISORDER [None]
  - DYSPHAGIA [None]
  - SENSATION OF FOREIGN BODY [None]
  - ERYTHEMA [None]
